FAERS Safety Report 7702266-9 (Version None)
Quarter: 2011Q3

REPORT INFORMATION
  Report Type: 
  Country: None (occurrence: None)
  Receive Date: 20110822
  Receipt Date: 20110811
  Transmission Date: 20111222
  Serious: Yes (Other)
  Sender: FDA-Public Use
  Company Number: US-ASTRAZENECA-2011SE48870

PATIENT
  Age: 75 Year
  Sex: Male

DRUGS (11)
  1. HYDROCHLOROTHIAZIDE [Concomitant]
     Route: 048
  2. GLUCOSAMINE CHONDR [Concomitant]
     Route: 048
  3. NOVOLIN 70/30 [Concomitant]
     Dosage: 70/30 70-30% SUSP
  4. FISH OIL [Concomitant]
     Route: 048
  5. CO-Q 10 [Concomitant]
     Route: 048
  6. CRESTOR [Suspect]
     Route: 048
  7. TERAZOSIN HCL [Concomitant]
     Route: 048
  8. ADULT ASPIRIN EC [Concomitant]
     Route: 048
  9. CAPTOPRIL [Concomitant]
     Route: 048
  10. CIALIS [Concomitant]
     Route: 048
  11. LOVAZA [Concomitant]
     Route: 048

REACTIONS (22)
  - ROSACEA [None]
  - DIABETIC NEUROPATHY [None]
  - PROSTATE CANCER [None]
  - DIABETES MELLITUS [None]
  - ESSENTIAL HYPERTENSION [None]
  - HYPERLIPIDAEMIA [None]
  - ACTINIC KERATOSIS [None]
  - COLONIC POLYP [None]
  - DRY EYE [None]
  - ASTHENIA [None]
  - HYPOTHYROIDISM [None]
  - ANAEMIA [None]
  - RHINITIS [None]
  - OEDEMA PERIPHERAL [None]
  - TRANSAMINASES INCREASED [None]
  - SLEEP APNOEA SYNDROME [None]
  - HYPOGONADISM [None]
  - TINEA PEDIS [None]
  - CONSTIPATION [None]
  - BLOOD TEST ABNORMAL [None]
  - NEURITIS [None]
  - DACRYOSTENOSIS ACQUIRED [None]
